FAERS Safety Report 9152897 (Version 1)
Quarter: 2013Q1

REPORT INFORMATION
  Report Type: Spontaneous
  Country: US (occurrence: US)
  Receive Date: 20130309
  Receipt Date: 20130309
  Transmission Date: 20140127
  Serious: No
  Sender: FDA-Public Use
  Company Number: US-ASTRAZENECA-2013SE13549

PATIENT
  Age: 57 Year
  Sex: Female
  Weight: 83.9 kg

DRUGS (6)
  1. NEXIUM [Suspect]
     Indication: GASTROOESOPHAGEAL REFLUX DISEASE
     Route: 048
     Dates: start: 200703
  2. BLOOD PRESSURE MEDICATIONS [Concomitant]
  3. MIGRAINE MEDICATIUONS [Concomitant]
  4. CALCIUM [Concomitant]
  5. VITAMIN C [Concomitant]
  6. MULTIVITAMIN [Concomitant]

REACTIONS (6)
  - Osteopenia [Not Recovered/Not Resolved]
  - Senile osteoporosis [Not Recovered/Not Resolved]
  - Eating disorder [Recovered/Resolved]
  - Vomiting [Recovered/Resolved]
  - Dry throat [Not Recovered/Not Resolved]
  - Drug dose omission [Recovering/Resolving]
